FAERS Safety Report 5082082-X (Version None)
Quarter: 2006Q3

REPORT INFORMATION
  Report Type: 
  Country: None (occurrence: None)
  Receive Date: 20060720
  Receipt Date: 20060426
  Transmission Date: 20061208
  Serious: Yes (Other)
  Sender: FDA-Public Use
  Company Number: 2006057775

PATIENT
  Age: 59 Year
  Sex: Male
  Weight: 77.1115 kg

DRUGS (3)
  1. CELEBREX [Suspect]
     Indication: RHEUMATOID ARTHRITIS
     Dosage: 400 MG (200 MG, 2 IN 1 D),
     Dates: start: 20020102
  2. ASPIRIN [Concomitant]
  3. ALEVE [Concomitant]

REACTIONS (1)
  - CEREBROVASCULAR ACCIDENT [None]
